FAERS Safety Report 10016032 (Version 3)
Quarter: 2014Q2

REPORT INFORMATION
  Report Type: Spontaneous
  Country: US (occurrence: US)
  Receive Date: 20140317
  Receipt Date: 20140625
  Transmission Date: 20141212
  Serious: Yes (Other)
  Sender: FDA-Public Use
  Company Number: US-PFIZER INC-2014073191

PATIENT
  Age: 50 Year
  Sex: Female
  Weight: 67 kg

DRUGS (5)
  1. LIPITOR [Suspect]
     Indication: LOW DENSITY LIPOPROTEIN INCREASED
     Dosage: 20 MG, UNK
     Route: 048
     Dates: start: 20051014, end: 20110512
  2. LIPITOR [Suspect]
     Indication: CARDIOVASCULAR EVENT PROPHYLAXIS
  3. LISINOPRIL [Concomitant]
     Indication: HYPERTENSION
     Dosage: 5 MG, 1X/DAY
     Dates: start: 2000
  4. IBUPROFEN [Concomitant]
     Indication: ARTHRITIS
     Dosage: 200 MG, 2X/DAY
     Dates: start: 2006
  5. NORTREL [Concomitant]
     Indication: CONTRACEPTION
     Dosage: UNK, 1/35 ONCE A DAY
     Route: 048
     Dates: start: 2005, end: 2011

REACTIONS (1)
  - Type 2 diabetes mellitus [Not Recovered/Not Resolved]
